FAERS Safety Report 8128846-7 (Version None)
Quarter: 2012Q1

REPORT INFORMATION
  Report Type: 
  Country: None (occurrence: None)
  Receive Date: 20120210
  Receipt Date: 20110511
  Transmission Date: 20120608
  Serious: No
  Sender: FDA-Public Use
  Company Number: US-BRISTOL-MYERS SQUIBB COMPANY-15644610

PATIENT
  Age: 49 Year
  Sex: Female

DRUGS (18)
  1. ALENDRONATE SODIUM [Concomitant]
  2. MELOXICAM [Concomitant]
  3. PREDNISONE TAB [Concomitant]
  4. PROVENTIL [Concomitant]
  5. SIMVASTATIN [Concomitant]
  6. TOPROL-XL [Concomitant]
  7. LORTAB [Concomitant]
  8. NEXIUM [Concomitant]
  9. VERAPAMIL [Concomitant]
  10. CYCLOBENZAPRINE [Concomitant]
  11. ORENCIA [Suspect]
     Indication: RHEUMATOID ARTHRITIS
     Dosage: ALSO 14 OCT 2010OF64404MAY2013: 30SEP2010 OF61548 MAY2013
     Route: 042
     Dates: start: 20100930
  12. ARAVA [Concomitant]
  13. PHENERGAN [Concomitant]
  14. SYMBICORT [Concomitant]
  15. CALCIUM CARBONATE [Concomitant]
  16. HYDROXYZINE [Concomitant]
  17. LISINOPRIL AND HYDROCHLOROTHIAZIDE [Concomitant]
  18. VITAMIN D [Concomitant]

REACTIONS (1)
  - ASTHMA [None]
